FAERS Safety Report 25614902 (Version 3)
Quarter: 2025Q3

REPORT INFORMATION
  Report Type: Spontaneous
  Country: BR (occurrence: BR)
  Receive Date: 20250729
  Receipt Date: 20250910
  Transmission Date: 20251021
  Serious: Yes (Hospitalization, Other)
  Sender: ABBVIE
  Company Number: BR-ABBOTT-2025A-1401114

PATIENT
  Sex: Female
  Weight: 65 kg

DRUGS (10)
  1. SYNTHROID [Suspect]
     Active Substance: LEVOTHYROXINE SODIUM
     Indication: Thyroid disorder
     Route: 048
  2. SYNTHROID [Suspect]
     Active Substance: LEVOTHYROXINE SODIUM
     Indication: Thyroid disorder
     Route: 048
  3. AMLODIPINE BESYLATE [Concomitant]
     Active Substance: AMLODIPINE BESYLATE
     Indication: Blood pressure measurement
     Dosage: TWICE A DAY, MORNING AND EVENING
  4. BROMAZEPAM [Concomitant]
     Active Substance: BROMAZEPAM
     Indication: Depression
     Dosage: 1 TABLET IN THE MORNING AND 1 AT NIGHT.
  5. HYDROCHLOROTHIAZIDE [Concomitant]
     Active Substance: HYDROCHLOROTHIAZIDE
     Indication: Blood pressure measurement
     Dosage: TWICE A DAY, MORNING AND EVENING
  6. ANAFRANIL [Concomitant]
     Active Substance: CLOMIPRAMINE HYDROCHLORIDE
     Indication: Depression
     Dosage: 3 TABLETS IN THE MORNING AND 1 AT NIGHT
  7. OLMESARTAN [Concomitant]
     Active Substance: OLMESARTAN
     Indication: Blood pressure measurement
     Dosage: 1 IN THE MORNING
  8. ATENOLOL [Concomitant]
     Active Substance: ATENOLOL
     Indication: Blood pressure measurement
     Dosage: TWICE A DAY, MORNING AND EVENING
  9. Desve [Concomitant]
     Indication: Depression
     Dosage: 1 IN THE MORNING
  10. QUETIAPINE FUMARATE [Concomitant]
     Active Substance: QUETIAPINE FUMARATE
     Indication: Depression
     Dosage: 1 AT NIGHT

REACTIONS (18)
  - Obstructive pancreatitis [Recovered/Resolved]
  - Product physical issue [Unknown]
  - Therapy cessation [Unknown]
  - Weight decreased [Unknown]
  - Pancreatitis [Unknown]
  - Depression [Unknown]
  - Catarrh [Unknown]
  - Blood test abnormal [Unknown]
  - Therapeutic response unexpected [Unknown]
  - Headache [Not Recovered/Not Resolved]
  - Pneumonia [Unknown]
  - Thirst [Not Recovered/Not Resolved]
  - Malaise [Unknown]
  - Hypertension [Unknown]
  - Nervousness [Unknown]
  - Nightmare [Unknown]
  - Cholelithiasis [Unknown]
  - Blood pressure abnormal [Unknown]

NARRATIVE: CASE EVENT DATE: 20130101
